FAERS Safety Report 24437109 (Version 1)
Quarter: 2024Q4

REPORT INFORMATION
  Report Type: Spontaneous
  Country: FR (occurrence: FR)
  Receive Date: 20241015
  Receipt Date: 20241015
  Transmission Date: 20250115
  Serious: Yes (Hospitalization)
  Sender: CHEPLAPHARM
  Company Number: None

PATIENT
  Age: 17 Year
  Sex: Female
  Weight: 44 kg

DRUGS (11)
  1. ETOPOSIDE PHOSPHATE [Suspect]
     Active Substance: ETOPOSIDE PHOSPHATE
     Indication: Hodgkin^s disease
     Dosage: C1. LYOPHILISATE FOR PARENTERAL USE ?DAILY DOSE: 192 MILLILITRE
     Route: 042
     Dates: start: 20240309, end: 20240309
  2. ETOPOSIDE PHOSPHATE [Suspect]
     Active Substance: ETOPOSIDE PHOSPHATE
     Indication: Hodgkin^s disease
     Dosage: C1. LYOPHILISATE FOR PARENTERAL USE ?DAILY DOSE: 192 MILLILITRE
     Route: 042
     Dates: start: 20240309, end: 20240312
  3. ETOPOSIDE PHOSPHATE [Suspect]
     Active Substance: ETOPOSIDE PHOSPHATE
     Indication: Hodgkin^s disease
     Dosage: C1. LYOPHILISATE FOR PARENTERAL USE ?DAILY DOSE: 192 MILLILITRE
     Route: 042
     Dates: start: 20240310, end: 20240310
  4. ETOPOSIDE PHOSPHATE [Suspect]
     Active Substance: ETOPOSIDE PHOSPHATE
     Indication: Hodgkin^s disease
     Dosage: C1. LYOPHILISATE FOR PARENTERAL USE ?DAILY DOSE: 192 MILLILITRE
     Route: 042
     Dates: start: 20240311, end: 20240311
  5. ETOPOSIDE PHOSPHATE [Suspect]
     Active Substance: ETOPOSIDE PHOSPHATE
     Indication: Hodgkin^s disease
     Dosage: C1. LYOPHILISATE FOR PARENTERAL USE ?DAILY DOSE: 192 MILLILITRE
     Route: 042
     Dates: start: 20240312, end: 20240312
  6. PREDNISONE [Suspect]
     Active Substance: PREDNISONE
     Dosage: PREDNISONE 92 MG TOTAL DOSE
     Dates: start: 20240308, end: 202405
  7. PREDNISONE [Suspect]
     Active Substance: PREDNISONE
     Dosage: PREDNISONE 92 MG TOTAL DOSE
     Dates: start: 20240315, end: 202405
  8. PREDNISONE [Suspect]
     Active Substance: PREDNISONE
     Dosage: PREDNISONE 92 MG TOTAL DOSE
     Dates: start: 20240322, end: 202405
  9. DOXORUBICIN HYDROCHLORIDE [Suspect]
     Active Substance: DOXORUBICIN HYDROCHLORIDE
     Indication: Hodgkin^s disease
     Dosage: CYCLE  1
     Route: 042
     Dates: start: 20240308, end: 20240322
  10. VINCRISTINE SULFATE [Suspect]
     Active Substance: VINCRISTINE SULFATE
     Indication: Hodgkin^s disease
     Dosage: C1. SOLUTION INJECTABLE
     Route: 042
     Dates: start: 20240308, end: 20240322
  11. VINCRISTINE SULFATE [Suspect]
     Active Substance: VINCRISTINE SULFATE
     Indication: Hodgkin^s disease
     Dosage: C1. SOLUTION INJECTABLE
     Route: 042
     Dates: start: 20240315, end: 20240322

REACTIONS (16)
  - Pancytopenia [Recovered/Resolved]
  - Septic shock [Unknown]
  - Febrile neutropenia [Unknown]
  - Cardiogenic shock [Unknown]
  - Subclavian vein thrombosis [Unknown]
  - Melaena [Unknown]
  - Duodenal ulcer [Unknown]
  - Acute kidney injury [Unknown]
  - Hepatic cytolysis [Unknown]
  - Sinusitis [Unknown]
  - Oesophagitis [Unknown]
  - Mucosal inflammation [Unknown]
  - Neuralgia [Unknown]
  - Abscess limb [Recovered/Resolved]
  - Abscess [Recovered/Resolved]
  - Haematoma [Unknown]

NARRATIVE: CASE EVENT DATE: 20240324
